FAERS Safety Report 8976715 (Version 3)
Quarter: 2013Q1

REPORT INFORMATION
  Report Type: Spontaneous
  Country: US (occurrence: US)
  Receive Date: 20121220
  Receipt Date: 20130307
  Transmission Date: 20140127
  Serious: Yes (Hospitalization)
  Sender: FDA-Public Use
  Company Number: US-ELI_LILLY_AND_COMPANY-US201212003060

PATIENT
  Age: 77 Year
  Sex: Female
  Weight: 52.15 kg

DRUGS (3)
  1. FORTEO [Suspect]
     Indication: OSTEOPOROSIS
     Dosage: 20 UG, QD
     Dates: start: 20120710, end: 20120825
  2. ALBUTEROL [Concomitant]
     Dosage: UNK
     Route: 055
  3. PULMICORT [Concomitant]
     Dosage: UNK
     Route: 055

REACTIONS (2)
  - Humerus fracture [Recovered/Resolved]
  - Fall [Recovered/Resolved]
